FAERS Safety Report 24169547 (Version 2)
Quarter: 2024Q3

REPORT INFORMATION
  Report Type: Report from Study
  Country: US (occurrence: US)
  Receive Date: 20240802
  Receipt Date: 20240829
  Transmission Date: 20241017
  Serious: Yes (Hospitalization, Other)
  Sender: ABBVIE
  Company Number: US-ABBVIE-5572878

PATIENT
  Age: 68 Year
  Sex: Female
  Weight: 48 kg

DRUGS (4)
  1. HUMIRA [Suspect]
     Active Substance: ADALIMUMAB
     Indication: Rheumatoid arthritis
     Dosage: CITRATE FREE
     Route: 058
     Dates: start: 20210812, end: 20230728
  2. HUMIRA [Suspect]
     Active Substance: ADALIMUMAB
     Dosage: LAST ADMIN DATE: 2021?CITRATE FREE
     Route: 058
     Dates: start: 20210103
  3. LEFLUNOMIDE [Suspect]
     Active Substance: LEFLUNOMIDE
     Indication: Product used for unknown indication
     Route: 065
     Dates: start: 20240820
  4. DEXAMETHASONE [Suspect]
     Active Substance: DEXAMETHASONE
     Indication: Product used for unknown indication
     Route: 048
     Dates: start: 20240820

REACTIONS (25)
  - Sepsis [Unknown]
  - Pneumonia legionella [Recovered/Resolved]
  - Drug ineffective [Unknown]
  - Immunosuppression [Unknown]
  - Weight decreased [Unknown]
  - Pneumonia [Recovered/Resolved]
  - Abscess [Unknown]
  - Illness [Unknown]
  - Pneumonia [Unknown]
  - Blood pressure decreased [Unknown]
  - Pruritus [Unknown]
  - Skin swelling [Unknown]
  - Pain of skin [Unknown]
  - Lung disorder [Unknown]
  - Arthralgia [Unknown]
  - Red blood cell count increased [Unknown]
  - Mass [Unknown]
  - Urticaria [Unknown]
  - Vomiting [Unknown]
  - White blood cell count increased [Unknown]
  - Infection [Recovered/Resolved]
  - Nausea [Unknown]
  - Headache [Unknown]
  - Gait inability [Unknown]
  - Aphasia [Unknown]

NARRATIVE: CASE EVENT DATE: 20230701
